FAERS Safety Report 12781142 (Version 1)
Quarter: 2016Q3

REPORT INFORMATION
  Report Type: Spontaneous
  Country: US (occurrence: US)
  Receive Date: 20160926
  Receipt Date: 20160926
  Transmission Date: 20161109
  Serious: Yes (Other)
  Sender: FDA-Public Use
  Company Number: HRA-CDB20140108 (1)

PATIENT
  Age: 32 Year
  Sex: Female
  Weight: 61.36 kg

DRUGS (5)
  1. FISH OIL [Concomitant]
     Active Substance: FISH OIL
  2. CHONDROITIN [Concomitant]
     Active Substance: CHONDROITIN
  3. ELLA [Suspect]
     Active Substance: ULIPRISTAL ACETATE
     Route: 048
     Dates: start: 20140706, end: 20140706
  4. CYANOCOBALAMIN. [Concomitant]
     Active Substance: CYANOCOBALAMIN
  5. ASCORBIC ACID. [Concomitant]
     Active Substance: ASCORBIC ACID

REACTIONS (3)
  - Biochemical pregnancy [None]
  - Unintended pregnancy [None]
  - Vaginal discharge [None]

NARRATIVE: CASE EVENT DATE: 20140723
